FAERS Safety Report 24110173 (Version 1)
Quarter: 2024Q3

REPORT INFORMATION
  Report Type: Report from Study
  Country: TR (occurrence: TR)
  Receive Date: 20240718
  Receipt Date: 20240718
  Transmission Date: 20241016
  Serious: Yes (Congenital Anomaly, Other)
  Sender: UCB
  Company Number: TR-UCBSA-2024035774

PATIENT

DRUGS (2)
  1. LEVETIRACETAM [Suspect]
     Active Substance: LEVETIRACETAM
     Indication: Epilepsy
     Dosage: UNK
     Route: 064
  2. LEVETIRACETAM [Suspect]
     Active Substance: LEVETIRACETAM
     Dosage: UNK
     Route: 063

REACTIONS (17)
  - Congenital musculoskeletal disorder of skull [Unknown]
  - Microcephaly [Unknown]
  - Congenital eyelid malformation [Unknown]
  - Hypertelorism [Unknown]
  - Hypotelorism of orbit [Unknown]
  - Low set ears [Unknown]
  - Congenital nose malformation [Unknown]
  - Micrognathia [Unknown]
  - Congenital oral malformation [Unknown]
  - Haemangioma congenital [Unknown]
  - Congenital skin disorder [Unknown]
  - Congenital skin dimples [Not Recovered/Not Resolved]
  - Premature baby [Unknown]
  - Developmental delay [Unknown]
  - Maternal exposure before pregnancy [Unknown]
  - Maternal exposure during pregnancy [Unknown]
  - Exposure via breast milk [Unknown]
